FAERS Safety Report 7024194-7 (Version None)
Quarter: 2010Q4

REPORT INFORMATION
  Report Type: 
  Country: None (occurrence: None)
  Receive Date: 20101001
  Receipt Date: 20100924
  Transmission Date: 20110411
  Serious: Yes (Hospitalization)
  Sender: FDA-Public Use
  Company Number: JP-JNJFOC-20100908334

PATIENT
  Age: 6 Decade
  Sex: Male

DRUGS (5)
  1. DUROTEP MT [Suspect]
     Indication: PRODUCT USED FOR UNKNOWN INDICATION
     Route: 062
  2. OXYCONTIN [Concomitant]
     Route: 048
  3. OXYCONTIN [Concomitant]
     Route: 048
  4. XYLOCAINE [Concomitant]
     Route: 041
  5. AMITRIPTYLINE HYDROCHLORIDE [Concomitant]
     Route: 065

REACTIONS (4)
  - BREAKTHROUGH PAIN [None]
  - DISORIENTATION [None]
  - SOMNOLENCE [None]
  - WRONG TECHNIQUE IN DRUG USAGE PROCESS [None]
